FAERS Safety Report 6667078-6 (Version None)
Quarter: 2010Q2

REPORT INFORMATION
  Report Type: 
  Country: None (occurrence: None)
  Receive Date: 20100405
  Receipt Date: 20100326
  Transmission Date: 20101027
  Serious: Yes (Hospitalization, Other)
  Sender: FDA-Public Use
  Company Number: US-ASTRAZENECA-2010SE09940

PATIENT
  Sex: Male

DRUGS (3)
  1. SEROQUEL [Suspect]
     Indication: SCHIZOPHRENIA
     Route: 048
     Dates: start: 20100204
  2. CLOZARIL [Suspect]
     Route: 065
     Dates: end: 20100204
  3. ZYPREXA [Suspect]
     Route: 065

REACTIONS (12)
  - BLOOD CANNABINOIDS [None]
  - CEREBELLAR ATROPHY [None]
  - DEEP VEIN THROMBOSIS [None]
  - DEHYDRATION [None]
  - HYPERGLYCAEMIA [None]
  - HYPERNATRAEMIA [None]
  - MENTAL STATUS CHANGES [None]
  - NEUROLEPTIC MALIGNANT SYNDROME [None]
  - RENAL FAILURE ACUTE [None]
  - RHABDOMYOLYSIS [None]
  - STAPHYLOCOCCAL BACTERAEMIA [None]
  - THROMBOCYTOPENIA [None]
